FAERS Safety Report 17970942 (Version 1)
Quarter: 2020Q3

REPORT INFORMATION
  Report Type: Spontaneous
  Country: CN (occurrence: CN)
  Receive Date: 20200702
  Receipt Date: 20200702
  Transmission Date: 20201103
  Serious: Yes (Other)
  Sender: FDA-Public Use
  Company Number: CN-ROCHE-2631270

PATIENT
  Age: 30 Year
  Sex: Male

DRUGS (12)
  1. CICLOSPORIN A [Concomitant]
     Active Substance: CYCLOSPORINE
     Indication: PROPHYLAXIS AGAINST GRAFT VERSUS HOST DISEASE
  2. RITUXIMAB. [Suspect]
     Active Substance: RITUXIMAB
     Indication: POST TRANSPLANT LYMPHOPROLIFERATIVE DISORDER
     Route: 065
  3. CLADRIBINE. [Concomitant]
     Active Substance: CLADRIBINE
     Indication: PRODUCT USED FOR UNKNOWN INDICATION
     Route: 065
  4. BUSULFAN. [Concomitant]
     Active Substance: BUSULFAN
     Indication: PRODUCT USED FOR UNKNOWN INDICATION
     Route: 065
  5. ANTILYMPHOCYTE IMMUNOGLOBULIN (RABBIT) [Concomitant]
     Active Substance: LAPINE T-LYMPHOCYTE IMMUNE GLOBULIN
     Indication: PRODUCT USED FOR UNKNOWN INDICATION
     Route: 065
  6. CYTARABINE. [Concomitant]
     Active Substance: CYTARABINE
     Indication: PRODUCT USED FOR UNKNOWN INDICATION
  7. SEMUSTINE [Concomitant]
     Active Substance: SEMUSTINE
     Indication: PRODUCT USED FOR UNKNOWN INDICATION
     Dosage: 250MG/M2 PER DAY
     Route: 065
  8. CYCLOPHOSPHAMIDE. [Concomitant]
     Active Substance: CYCLOPHOSPHAMIDE
     Indication: PRODUCT USED FOR UNKNOWN INDICATION
     Route: 065
  9. MYCOPHENOLATE MOFETIL. [Suspect]
     Active Substance: MYCOPHENOLATE MOFETIL
     Indication: PROPHYLAXIS AGAINST GRAFT VERSUS HOST DISEASE
     Route: 065
  10. METHOTREXATE. [Concomitant]
     Active Substance: METHOTREXATE
     Indication: PROPHYLAXIS AGAINST GRAFT VERSUS HOST DISEASE
  11. ALPROSTADIL. [Concomitant]
     Active Substance: ALPROSTADIL
     Route: 065
  12. MESNA. [Concomitant]
     Active Substance: MESNA

REACTIONS (5)
  - Cystitis haemorrhagic [Unknown]
  - Cytomegalovirus viraemia [Unknown]
  - Off label use [Unknown]
  - Intentional product use issue [Unknown]
  - Post transplant lymphoproliferative disorder [Recovering/Resolving]
